FAERS Safety Report 4686204-1 (Version None)
Quarter: 2005Q2

REPORT INFORMATION
  Report Type: 
  Country: None (occurrence: None)
  Receive Date: 20050606
  Receipt Date: 20050525
  Transmission Date: 20051028
  Serious: Yes (Hospitalization, Other)
  Sender: FDA-Public Use
  Company Number: US_0505118022

PATIENT
  Age: 82 Year
  Sex: Female
  Weight: 51 kg

DRUGS (8)
  1. CYMBALTA [Suspect]
     Indication: MAJOR DEPRESSION
     Dosage: 40 MG
     Dates: start: 20041228, end: 20050118
  2. ZOLPIDEM [Concomitant]
  3. AMLODIPINE [Concomitant]
  4. LANSOPRAZOLE [Concomitant]
  5. MESALAMINE [Concomitant]
  6. TRAZODONE HCL [Concomitant]
  7. DOCUSATE [Concomitant]
  8. PSYLLIUM [Concomitant]

REACTIONS (1)
  - BLOOD SODIUM DECREASED [None]
